FAERS Safety Report 9729710 (Version 1)
Quarter: 2013Q4

REPORT INFORMATION
  Report Type: Spontaneous
  Country: DE (occurrence: None)
  Receive Date: 20131203
  Receipt Date: 20131203
  Transmission Date: 20140711
  Serious: Yes (Hospitalization)
  Sender: FDA-Public Use
  Company Number: AUR-APL-2013-09825

PATIENT
  Age: 68 Year
  Sex: Male

DRUGS (6)
  1. PAROXETINE [Suspect]
     Indication: PRODUCT USED FOR UNKNOWN INDICATION
     Route: 048
     Dates: end: 20130610
  2. PROMETHAZINE [Suspect]
     Indication: PRODUCT USED FOR UNKNOWN INDICATION
     Route: 048
     Dates: end: 20130603
  3. TRAMADOL [Suspect]
     Indication: PRODUCT USED FOR UNKNOWN INDICATION
     Route: 048
     Dates: end: 20130625
  4. ASS (ACETYLSALICYLIC ACID) [Concomitant]
  5. GABAPENTIN [Concomitant]
  6. INDOMETACIN [Concomitant]

REACTIONS (6)
  - Drug interaction [None]
  - Tachycardia [None]
  - Hyperhidrosis [None]
  - Restlessness [None]
  - Tremor [None]
  - Disorientation [None]
